FAERS Safety Report 6291985-X (Version None)
Quarter: 2009Q3

REPORT INFORMATION
  Report Type: 
  Country: None (occurrence: None)
  Receive Date: 20090729
  Receipt Date: 20090720
  Transmission Date: 20100115
  Serious: Yes (Hospitalization)
  Sender: FDA-Public Use
  Company Number: 2009AL004285

PATIENT
  Sex: Male

DRUGS (1)
  1. DIGOXIN [Suspect]
     Dosage: 0.25MG, DAILY; PO
     Route: 048
     Dates: start: 20080301, end: 20080301

REACTIONS (2)
  - HYPERTENSION [None]
  - SURGERY [None]
